FAERS Safety Report 20075939 (Version 1)
Quarter: 2021Q4

REPORT INFORMATION
  Report Type: Spontaneous
  Country: US (occurrence: None)
  Receive Date: 20211115
  Receipt Date: 20211115
  Transmission Date: 20220303
  Serious: Yes (Hospitalization)
  Sender: FDA-Public Use
  Company Number: None

PATIENT
  Age: 22 Year
  Sex: Male

DRUGS (8)
  1. DEFERASIROX [Suspect]
     Active Substance: DEFERASIROX
     Indication: Congenital anomaly
     Dosage: OTHER FREQUENCY : QAM;?
     Route: 048
     Dates: start: 20191228
  2. EPOGEN [Concomitant]
     Active Substance: ERYTHROPOIETIN
  3. AMITRIPTYLINE [Concomitant]
     Active Substance: AMITRIPTYLINE
  4. DEXAMETHYLPH [Concomitant]
  5. PROCRIT [Concomitant]
     Active Substance: ERYTHROPOIETIN
  6. IPRATROPIUM [Concomitant]
     Active Substance: IPRATROPIUM
  7. MONTELUKAST [Concomitant]
     Active Substance: MONTELUKAST SODIUM
  8. TIZANIDINE [Concomitant]
     Active Substance: TIZANIDINE

REACTIONS (2)
  - Hospitalisation [None]
  - Therapy interrupted [None]

NARRATIVE: CASE EVENT DATE: 20211108
